FAERS Safety Report 8615742-1 (Version None)
Quarter: 2012Q3

REPORT INFORMATION
  Report Type: 
  Country: None (occurrence: None)
  Receive Date: 20120823
  Receipt Date: 20120820
  Transmission Date: 20120928
  Serious: Yes (Death, Hospitalization, Other)
  Sender: FDA-Public Use
  Company Number: US-BAXTER-2012BAX013151

PATIENT
  Sex: Male

DRUGS (4)
  1. DIANEAL LOW CALCIUM W/ DEXTROSE 1.5% [Suspect]
     Indication: PERITONEAL DIALYSIS
     Route: 033
     Dates: end: 20120728
  2. DIANEAL [Suspect]
     Indication: PERITONEAL DIALYSIS
     Route: 033
     Dates: start: 20120704, end: 20120728
  3. DIANEAL [Suspect]
     Route: 033
     Dates: start: 20120704, end: 20120728
  4. DIANEAL [Suspect]
     Route: 033
     Dates: start: 20120704, end: 20120728

REACTIONS (7)
  - SEPTIC SHOCK [None]
  - CARDIAC FAILURE [None]
  - ARTERIOSCLEROSIS CORONARY ARTERY [None]
  - INTESTINAL ISCHAEMIA [None]
  - GASTROINTESTINAL INFECTION [None]
  - CARDIAC ARREST [None]
  - SEPSIS [None]
